FAERS Safety Report 12379172 (Version 3)
Quarter: 2016Q2

REPORT INFORMATION
  Report Type: Spontaneous
  Country: DE (occurrence: DE)
  Receive Date: 20160517
  Receipt Date: 20160616
  Transmission Date: 20160815
  Serious: Yes (Other)
  Sender: FDA-Public Use
  Company Number: PHHY2016DE065057

PATIENT
  Age: 80 Year
  Sex: Male
  Weight: 95 kg

DRUGS (1)
  1. VOLTAREN RESINAT [Suspect]
     Active Substance: DICLOFENAC
     Indication: SPINAL DISORDER
     Dosage: 75 MG, BID (1-0-1)
     Route: 048
     Dates: start: 20160407

REACTIONS (12)
  - Swollen tongue [Recovered/Resolved]
  - Peripheral swelling [Recovered/Resolved]
  - Burning sensation [Recovered/Resolved]
  - Skin discolouration [Recovering/Resolving]
  - Oral discomfort [Recovered/Resolved]
  - Oedema [Recovering/Resolving]
  - Swelling face [Recovering/Resolving]
  - Cyanosis [Recovered/Resolved]
  - Lip swelling [Recovered/Resolved]
  - Glossodynia [Recovered/Resolved]
  - Respiratory distress [Unknown]
  - Palatal swelling [Recovered/Resolved]

NARRATIVE: CASE EVENT DATE: 20160407
